FAERS Safety Report 10723439 (Version 2)
Quarter: 2015Q1

REPORT INFORMATION
  Report Type: Spontaneous
  Country: JP (occurrence: JP)
  Receive Date: 20150120
  Receipt Date: 20150316
  Transmission Date: 20150721
  Serious: Yes (Hospitalization, Other)
  Sender: FDA-Public Use
  Company Number: JP-PFIZER INC-2015017761

PATIENT
  Age: 6 Decade
  Sex: Male

DRUGS (5)
  1. CAMPTO [Suspect]
     Active Substance: IRINOTECAN
     Indication: APPENDIX CANCER
     Dosage: UNK, 1X/DAY, CYCLIC
     Route: 041
  2. LEVOFOLINATE [Suspect]
     Active Substance: LEVOLEUCOVORIN CALCIUM
     Indication: APPENDIX CANCER
     Dosage: UNK, 1X/DAY, CYCLIC
     Route: 041
  3. 5-FU [Suspect]
     Active Substance: FLUOROURACIL
     Dosage: UNK
     Route: 041
  4. ERBITUX [Suspect]
     Active Substance: CETUXIMAB
     Indication: APPENDIX CANCER
     Dosage: UNK, CYCLIC
  5. 5-FU [Suspect]
     Active Substance: FLUOROURACIL
     Indication: APPENDIX CANCER
     Dosage: UNK, CYCLIC
     Route: 040

REACTIONS (2)
  - Pancytopenia [Unknown]
  - Necrotising fasciitis [Recovering/Resolving]
